FAERS Safety Report 9411925 (Version 1)
Quarter: 2013Q3

REPORT INFORMATION
  Report Type: Spontaneous
  Country: US (occurrence: US)
  Receive Date: 20130722
  Receipt Date: 20130722
  Transmission Date: 20140515
  Serious: Yes (Life-Threatening, Hospitalization, Other)
  Sender: FDA-Public Use
  Company Number: PHEH2013US015406

PATIENT
  Sex: Female

DRUGS (5)
  1. TEGRETOL-XR [Suspect]
     Indication: CONVULSION
     Dosage: 400 MG, BID
     Route: 048
  2. KEPPRA [Suspect]
     Indication: CONVULSION
     Dosage: 1000 MG, BID
     Route: 048
  3. QUETIAPINE XR [Concomitant]
     Indication: ANXIETY
     Dosage: 100 MG, QD
     Route: 048
     Dates: start: 2007
  4. LITHIUM [Concomitant]
     Dosage: 300 MG, QD
     Route: 048
  5. LEVOTHYROXINE [Concomitant]
     Indication: THYROID DISORDER
     Dosage: 0.112 UG, QD
     Route: 048

REACTIONS (11)
  - Suicide attempt [Unknown]
  - Asthenia [Unknown]
  - Dysstasia [Unknown]
  - Dyspnoea [Unknown]
  - Loss of consciousness [Unknown]
  - Tooth injury [Unknown]
  - Fear [Unknown]
  - Feeling abnormal [Unknown]
  - Head discomfort [Unknown]
  - Terminal insomnia [Unknown]
  - Grand mal convulsion [Unknown]
